FAERS Safety Report 16323756 (Version 14)
Quarter: 2020Q3

REPORT INFORMATION
  Report Type: Report from Study
  Country: GB (occurrence: GB)
  Receive Date: 20190517
  Receipt Date: 20200702
  Transmission Date: 20201102
  Serious: Yes (Life-Threatening, Hospitalization)
  Sender: FDA-Public Use
  Company Number: GB-ROCHE-2318415

PATIENT
  Age: 29 Year
  Sex: Female
  Weight: 56 kg

DRUGS (15)
  1. OCRELIZUMAB. [Suspect]
     Active Substance: OCRELIZUMAB
     Indication: RELAPSING-REMITTING MULTIPLE SCLEROSIS
     Dosage: ON DAYS 1 AND 15
     Route: 042
     Dates: start: 20180214
  2. CHLORPHENAMINE [Concomitant]
     Active Substance: CHLORPHENIRAMINE MALEATE
     Indication: PREMEDICATION
     Dosage: SAME DOSE ON 28/FEB/2018, 01/AUG/2018 AND 16/JAN/2019
     Route: 048
  3. BENZYDAMINE HYDROCHLORIDE [Concomitant]
     Active Substance: BENZYDAMINE HYDROCHLORIDE
     Indication: MOUTH ULCERATION
     Route: 060
     Dates: start: 20190701
  4. FILGRASTIM [Concomitant]
     Active Substance: FILGRASTIM
     Route: 058
  5. NEXPLANON [Concomitant]
     Active Substance: ETONOGESTREL
     Indication: PROPHYLAXIS
  6. DAKTARIN [MICONAZOLE] [Concomitant]
     Active Substance: MICONAZOLE
     Indication: ORAL CANDIDIASIS
     Route: 048
     Dates: end: 20191015
  7. NEXPLANON [Concomitant]
     Active Substance: ETONOGESTREL
     Indication: URINARY TRACT INFECTION
     Route: 050
     Dates: start: 20180711
  8. FILGRASTIM [Concomitant]
     Active Substance: FILGRASTIM
     Indication: AGRANULOCYTOSIS
     Route: 058
     Dates: start: 20190816, end: 20190816
  9. PARACETAMOL [Concomitant]
     Active Substance: ACETAMINOPHEN
     Indication: PREMEDICATION
     Dosage: SAME DOSE ON 28/FEB/2018, 01/AUG/2018 AND 16/JAN/2019
     Route: 048
  10. METHYLPREDNISOLONE. [Suspect]
     Active Substance: METHYLPREDNISOLONE
     Indication: PREMEDICATION
     Dosage: SUBSEQUET DOSES ON 28/FEB/2018, 01/AUG/2018 AND 16/JAN/2019.
     Route: 042
     Dates: start: 20180214
  11. CIPROFLOXACIN. [Concomitant]
     Active Substance: CIPROFLOXACIN
     Indication: URINARY TRACT INFECTION
     Route: 048
     Dates: start: 20180711, end: 20180717
  12. FLUCONAZOLE. [Concomitant]
     Active Substance: FLUCONAZOLE
     Route: 048
     Dates: start: 20190628
  13. CIPROFLOXACIN. [Concomitant]
     Active Substance: CIPROFLOXACIN
     Indication: COUGH
     Route: 048
     Dates: start: 20191003, end: 20191011
  14. OCRELIZUMAB. [Suspect]
     Active Substance: OCRELIZUMAB
     Dosage: RECENT DOSE OF OCRELIZUMAB ON 16/JAN/2019
     Route: 042
  15. PHENOXYMETHYLPENICILLIN [Concomitant]
     Active Substance: PENICILLIN V
     Indication: VIRAL INFECTION
     Route: 048
     Dates: start: 20190415, end: 20190425

REACTIONS (1)
  - Neutropenic sepsis [Recovered/Resolved]

NARRATIVE: CASE EVENT DATE: 20190510
